FAERS Safety Report 7000197-3 (Version None)
Quarter: 2010Q3

REPORT INFORMATION
  Report Type: 
  Country: None (occurrence: None)
  Receive Date: 20100920
  Receipt Date: 20100908
  Transmission Date: 20110219
  Serious: Yes (Life-Threatening)
  Sender: FDA-Public Use
  Company Number: SE-WYE-G06642710

PATIENT
  Sex: Female

DRUGS (1)
  1. TAZOCIN [Suspect]
     Indication: PYELONEPHRITIS
     Dosage: DOSE UNKNOWN
     Route: 042
     Dates: start: 20100626, end: 20100626

REACTIONS (10)
  - ACUTE MYOCARDIAL INFARCTION [None]
  - ANAPHYLACTIC SHOCK [None]
  - COMPUTERISED TOMOGRAM THORAX ABNORMAL [None]
  - CORONARY ARTERY OCCLUSION [None]
  - HYPOALBUMINAEMIA [None]
  - HYPOTONIA [None]
  - IRON DEFICIENCY ANAEMIA [None]
  - LUNG NEOPLASM MALIGNANT [None]
  - PNEUMONITIS [None]
  - THERAPEUTIC RESPONSE DECREASED [None]
